FAERS Safety Report 16522044 (Version 5)
Quarter: 2019Q4

REPORT INFORMATION
  Report Type: Report from Study
  Country: IT (occurrence: IT)
  Receive Date: 20190703
  Receipt Date: 20191015
  Transmission Date: 20200122
  Serious: Yes (Hospitalization)
  Sender: FDA-Public Use
  Company Number: IT-ACCORD-136475

PATIENT
  Age: 64 Year
  Sex: Female

DRUGS (4)
  1. LITHIOFOR [Suspect]
     Active Substance: LITHIUM SULFATE
     Route: 048
     Dates: start: 20190417, end: 20190417
  2. QUETIAPINE. [Suspect]
     Active Substance: QUETIAPINE
     Route: 048
     Dates: start: 20190417, end: 20190417
  3. VALDORM [FLURAZEPAM HYDROCHLORIDE] [Suspect]
     Active Substance: FLURAZEPAM HYDROCHLORIDE
     Indication: INSOMNIA
     Dosage: STRENGTH: 15 MG CAPSULES
     Route: 048
     Dates: start: 20190417, end: 20190417
  4. RESILIENT [Suspect]
     Active Substance: LITHIUM SULFATE
     Dosage: STRENGTH: 83 MG PROLONGED-RELEASE TABLETS
     Route: 048
     Dates: start: 20190417, end: 20190417

REACTIONS (3)
  - Sopor [Recovered/Resolved]
  - Overdose [Unknown]
  - Drug abuse [Unknown]

NARRATIVE: CASE EVENT DATE: 20190417
